FAERS Safety Report 9437063 (Version 3)
Quarter: 2013Q3

REPORT INFORMATION
  Report Type: Spontaneous
  Country: IT (occurrence: IT)
  Receive Date: 20130802
  Receipt Date: 20130909
  Transmission Date: 20140515
  Serious: Yes (Hospitalization)
  Sender: FDA-Public Use
  Company Number: IT-PFIZER INC-2013223444

PATIENT
  Age: 72 Year
  Sex: Male
  Weight: 60 kg

DRUGS (3)
  1. CARBOPLATINO PFIZER ITALIA [Suspect]
     Indication: LUNG ADENOCARCINOMA
     Dosage: UNK
     Route: 042
     Dates: start: 20130405, end: 20130429
  2. ALIMTA [Suspect]
     Indication: LUNG ADENOCARCINOMA
     Dosage: 500 UG/M2, CYCLIC (EVERY 21 DAYS)
     Route: 042
     Dates: start: 20130405, end: 20130429
  3. ZOFRAN [Concomitant]
     Dosage: UNK
     Route: 042

REACTIONS (3)
  - Intestinal obstruction [Recovered/Resolved]
  - Leukopenia [Recovered/Resolved]
  - Thrombocytopenia [Recovered/Resolved]
